FAERS Safety Report 25374347 (Version 1)
Quarter: 2025Q2

REPORT INFORMATION
  Report Type: Spontaneous
  Country: NL (occurrence: NL)
  Receive Date: 20250529
  Receipt Date: 20250529
  Transmission Date: 20250716
  Serious: Yes (Other)
  Sender: FRESENIUS KABI
  Company Number: None

PATIENT
  Age: 5 Month
  Sex: Male
  Weight: 3.5 kg

DRUGS (2)
  1. ADALIMUMAB [Suspect]
     Active Substance: ADALIMUMAB
     Indication: Crohn^s disease
     Route: 064
     Dates: start: 20230101
  2. MESALAZINE TABLET MSR 800MG / Brand name not specified [Concomitant]
     Indication: Product used for unknown indication
     Route: 064

REACTIONS (2)
  - Neutropenia [Unknown]
  - Maternal exposure during pregnancy [Unknown]
